FAERS Safety Report 4917877-3 (Version None)
Quarter: 2006Q1

REPORT INFORMATION
  Report Type: 
  Country: None (occurrence: None)
  Receive Date: 20060221
  Receipt Date: 20051110
  Transmission Date: 20060701
  Serious: Yes (Death)
  Sender: FDA-Public Use
  Company Number: DE-AMGEN-UK157403

PATIENT
  Age: 63 Year
  Sex: Female

DRUGS (6)
  1. KINERET [Suspect]
     Indication: POLYARTHRITIS
     Route: 058
     Dates: start: 20021201, end: 20040913
  2. PREDNISOLONE [Concomitant]
     Route: 065
  3. ARCOXIA [Concomitant]
     Route: 065
  4. DEXAMETHASONE SODIUM PHOSPHATE [Concomitant]
     Route: 065
  5. METHOTREXATE [Concomitant]
     Route: 065
  6. ROFECOXIB [Concomitant]
     Route: 065

REACTIONS (5)
  - HEPATIC LESION [None]
  - METASTASES TO LUNG [None]
  - METASTATIC MALIGNANT MELANOMA [None]
  - RENAL CYST [None]
  - TRANSAMINASES INCREASED [None]
